FAERS Safety Report 5689745-3 (Version None)
Quarter: 2008Q1

REPORT INFORMATION
  Report Type: 
  Country: None (occurrence: None)
  Receive Date: 20080328
  Receipt Date: 20080317
  Transmission Date: 20080703
  Serious: Yes (Hospitalization)
  Sender: FDA-Public Use
  Company Number: GXKR2008GB02750

PATIENT
  Age: 81 Year
  Sex: Female

DRUGS (6)
  1. OMEPRAZOLE [Suspect]
     Indication: GASTRITIS
     Dosage: 40 MG, ORAL
     Route: 048
     Dates: start: 20010101, end: 20080110
  2. ESOMEPRAZOLE (ESOMEPRAZOLE) [Suspect]
     Indication: GASTRITIS
  3. ATENOLOL [Concomitant]
  4. CALCICHEW D3 (CALCIUM CARBONATE, COLECALCIFEROL) [Concomitant]
  5. RISEDRONATE SODIUM [Concomitant]
  6. TOLTERODINE TARTRATE [Concomitant]

REACTIONS (2)
  - COLITIS [None]
  - NAUSEA [None]
